FAERS Safety Report 14847840 (Version 1)
Quarter: 2018Q2

REPORT INFORMATION
  Report Type: Spontaneous
  Country: US (occurrence: US)
  Receive Date: 20180418
  Receipt Date: 20180418
  Transmission Date: 20180711
  Serious: No
  Sender: FDA-Public Use
  Company Number: None

PATIENT
  Age: 57 Year
  Sex: Female

DRUGS (1)
  1. MYCOPHENOLATE [Suspect]
     Active Substance: MYCOPHENOLIC ACID
     Indication: RENAL TRANSPLANT
     Route: 048
     Dates: start: 20180221, end: 20180410

REACTIONS (4)
  - Haematemesis [None]
  - Cough [None]
  - Rhinorrhoea [None]
  - Nausea [None]

NARRATIVE: CASE EVENT DATE: 20180410
